FAERS Safety Report 17162254 (Version 1)
Quarter: 2019Q4

REPORT INFORMATION
  Report Type: Spontaneous
  Country: DE (occurrence: DE)
  Receive Date: 20191217
  Receipt Date: 20191217
  Transmission Date: 20200122
  Serious: Yes (Hospitalization)
  Sender: FDA-Public Use
  Company Number: DE-TEVA-2019-DE-1151792

PATIENT
  Age: 52 Year
  Sex: Female
  Weight: 72 kg

DRUGS (2)
  1. CARBOPLATIN. [Suspect]
     Active Substance: CARBOPLATIN
     Indication: OVARIAN CANCER
     Dosage: 440 MG PLANNED?25 OF PLANNED 60 MIN, THEN DEMOLITION
     Route: 042
     Dates: start: 20191105, end: 20191105
  2. GEMCITABIN HEXAL 40 MG/ML KONZENTRAT ZUR HERSTELLUNG EINER INF.L?SUNG [Concomitant]
     Indication: OVARIAN CANCER
     Dosage: 1830 MG
     Route: 042
     Dates: start: 20191105, end: 20191105

REACTIONS (3)
  - Dyspnoea [Recovered/Resolved]
  - Rash [Recovered/Resolved]
  - Drug hypersensitivity [Recovered/Resolved]

NARRATIVE: CASE EVENT DATE: 20191105
